FAERS Safety Report 23143877 (Version 1)
Quarter: 2023Q4

REPORT INFORMATION
  Report Type: Spontaneous
  Country: US (occurrence: US)
  Receive Date: 20231103
  Receipt Date: 20231103
  Transmission Date: 20240110
  Serious: No
  Sender: FDA-Public Use
  Company Number: US-009507513-2311USA000834

PATIENT
  Age: 69 Year
  Sex: Male

DRUGS (4)
  1. DIFICID [Suspect]
     Active Substance: FIDAXOMICIN
     Indication: Clostridium difficile colitis
     Dosage: 200 MG/ TAKE 2 TABLETS BY MOUTH DAILY FOR 10 DAYS
     Route: 048
  2. PANTOPRAZOLE [Suspect]
     Active Substance: PANTOPRAZOLE
  3. ORGOVYX [Suspect]
     Active Substance: RELUGOLIX
  4. ZEPOSIA [Suspect]
     Active Substance: OZANIMOD HYDROCHLORIDE

REACTIONS (1)
  - Peripheral swelling [Unknown]
